FAERS Safety Report 8561867-9 (Version None)
Quarter: 2012Q3

REPORT INFORMATION
  Report Type: 
  Country: None (occurrence: None)
  Receive Date: 20120802
  Receipt Date: 20120719
  Transmission Date: 20120928
  Serious: No
  Sender: FDA-Public Use
  Company Number: US-AMGEN-USASP2012021049

PATIENT
  Age: 67 Year
  Sex: Female

DRUGS (2)
  1. ENBREL [Suspect]
     Indication: RHEUMATOID ARTHRITIS
     Dosage: 50 MG, QWK
     Dates: start: 20110308
  2. ENBREL [Suspect]
     Indication: FIBROMYALGIA

REACTIONS (8)
  - FOOT DEFORMITY [None]
  - INFLAMMATION [None]
  - DRUG INEFFECTIVE [None]
  - BUNION [None]
  - FINGER DEFORMITY [None]
  - SWELLING [None]
  - OEDEMA PERIPHERAL [None]
  - HYPERKERATOSIS [None]
